FAERS Safety Report 15840945 (Version 1)
Quarter: 2019Q1

REPORT INFORMATION
  Report Type: Spontaneous
  Country: DE (occurrence: DE)
  Receive Date: 20190118
  Receipt Date: 20190118
  Transmission Date: 20190417
  Serious: Yes (Congenital Anomaly)
  Sender: FDA-Public Use
  Company Number: DE-PFIZER INC-2019018477

PATIENT
  Age: 1 Day
  Sex: Male
  Weight: 1.98 kg

DRUGS (3)
  1. FOLIO FORTE [Concomitant]
     Active Substance: FOLIC ACID\VITAMINS
     Dosage: 0.8 MG/D
     Route: 064
     Dates: start: 20170911, end: 20180423
  2. VENLAFAXINE HCL [Suspect]
     Active Substance: VENLAFAXINE HYDROCHLORIDE
     Indication: ANXIETY DISORDER
     Dosage: 150 [MG/D ], GESTATION PERIOD: 1 TRIMESTER, 0. - 32. GESTATIONAL WEEK
     Route: 064
     Dates: start: 20170911, end: 20180423
  3. KLACID [CLARITHROMYCIN] [Concomitant]
     Active Substance: CLARITHROMYCIN
     Indication: UREAPLASMA INFECTION
     Dosage: GESTATION PERIOD: 3 TRIMESTER, 29.1. - 31.0. GESTATIONAL WEEK
     Route: 064

REACTIONS (2)
  - Tracheal stenosis [Unknown]
  - Maternal exposure during pregnancy [Unknown]

NARRATIVE: CASE EVENT DATE: 20180423
